FAERS Safety Report 10185835 (Version 1)
Quarter: 2014Q2

REPORT INFORMATION
  Report Type: Spontaneous
  Country: US (occurrence: US)
  Receive Date: 20140521
  Receipt Date: 20140521
  Transmission Date: 20141212
  Serious: No
  Sender: FDA-Public Use
  Company Number: US-BAYER-2014-074932

PATIENT
  Age: 95 Year
  Sex: Male

DRUGS (2)
  1. ALEVE CAPLET [Suspect]
     Dosage: UNK
     Route: 048
  2. ALEVE CAPLET [Suspect]
     Dosage: 3 DF, ONCE
     Route: 048
     Dates: start: 20140519, end: 20140519

REACTIONS (1)
  - Inappropriate schedule of drug administration [None]
